FAERS Safety Report 11277466 (Version 1)
Quarter: 2015Q3

REPORT INFORMATION
  Report Type: Spontaneous
  Country: US (occurrence: US)
  Receive Date: 20150716
  Receipt Date: 20150716
  Transmission Date: 20151125
  Serious: No
  Sender: FDA-Public Use
  Company Number: US-GLAXOSMITHKLINE-US2015099859

PATIENT
  Age: 61 Year
  Sex: Male

DRUGS (2)
  1. ROPINIROLE HYDROCHLORIDE MODIFIED-RELEASE TABLET [Suspect]
     Active Substance: ROPINIROLE HYDROCHLORIDE
     Indication: PARKINSON^S DISEASE
     Dosage: 2 MG, QD
     Route: 048
     Dates: start: 20150521, end: 20150528
  2. ROPINIROLE HYDROCHLORIDE MODIFIED-RELEASE TABLET [Suspect]
     Active Substance: ROPINIROLE HYDROCHLORIDE
     Dosage: 2 MG, QD
     Dates: start: 20150626, end: 20150707

REACTIONS (1)
  - Pain in extremity [Not Recovered/Not Resolved]

NARRATIVE: CASE EVENT DATE: 20150524
